FAERS Safety Report 6691996-6 (Version None)
Quarter: 2010Q2

REPORT INFORMATION
  Report Type: 
  Country: None (occurrence: None)
  Receive Date: 20100422
  Receipt Date: 20100416
  Transmission Date: 20101027
  Serious: Yes (Other)
  Sender: FDA-Public Use
  Company Number: US-ROCHE-690149

PATIENT
  Sex: Female
  Weight: 76.7 kg

DRUGS (13)
  1. TOCILIZUMAB [Suspect]
     Indication: RHEUMATOID ARTHRITIS
     Dosage: LAST DOSE PRIOR TO SAE: 18 FEBRUARY 2010, TOTAL MONTHLY DOSE: 31.9 MG, FORM : INFUSION
     Route: 042
     Dates: start: 20070111, end: 20100304
  2. TOCILIZUMAB [Suspect]
     Dosage: THEPATIENT WAS PREVIOUSLY ENROLLED IN STUDY WA 18062 AND RECEIVED TOCILIZUMAB 4MG/KG
     Route: 042
  3. METHOTREXATE [Concomitant]
     Dosage: DRUG: MTX.
     Dates: start: 20080630, end: 20100303
  4. CELEBREX [Concomitant]
     Dates: start: 20070615
  5. PREDNISOLONE [Concomitant]
     Dates: start: 20071130
  6. LORTAB [Concomitant]
     Dates: start: 20060301
  7. METANX [Concomitant]
     Dates: start: 20050727
  8. SOMA [Concomitant]
     Dates: start: 20060206
  9. LUNESTA [Concomitant]
     Dates: start: 20060301
  10. ESTRADIOL [Concomitant]
     Dates: start: 19910101
  11. ACIPHEX [Concomitant]
     Dates: start: 20070129
  12. CRESTOR [Concomitant]
     Dates: start: 20090217
  13. PREDNISONE [Concomitant]
     Route: 048

REACTIONS (1)
  - BREAST CANCER [None]
